FAERS Safety Report 8428529-X (Version None)
Quarter: 2012Q2

REPORT INFORMATION
  Report Type: 
  Country: None (occurrence: None)
  Receive Date: 20120612
  Receipt Date: 20120601
  Transmission Date: 20120825
  Serious: Yes (Life-Threatening, Hospitalization)
  Sender: FDA-Public Use
  Company Number: RU-BRISTOL-MYERS SQUIBB COMPANY-16575573

PATIENT
  Age: 64 Year
  Sex: Female

DRUGS (2)
  1. S-1 [Suspect]
     Indication: METASTATIC GASTRIC CANCER
     Dosage: DAY1 TO 21(BID)EACH 4WEEK CYCLE DAY22 TO 28(REST PERIOD) LAST ADMIN DT:19APR12
     Route: 048
     Dates: start: 20120203
  2. CISPLATIN [Suspect]
     Indication: METASTATIC GASTRIC CANCER
     Dosage: LAST ADMIN DT:19APR12
     Route: 041
     Dates: start: 20120203

REACTIONS (1)
  - ANAEMIA [None]
